FAERS Safety Report 8041291-8 (Version None)
Quarter: 2012Q1

REPORT INFORMATION
  Report Type: 
  Country: None (occurrence: None)
  Receive Date: 20120109
  Receipt Date: 20111226
  Transmission Date: 20120608
  Serious: Yes (Hospitalization, Other)
  Sender: FDA-Public Use
  Company Number: 2011MA018068

PATIENT
  Sex: Female
  Weight: 74.8435 kg

DRUGS (21)
  1. LORTAB [Concomitant]
  2. M.V.I. [Concomitant]
  3. TRAZODONE HCL [Concomitant]
  4. ASPIRIN [Concomitant]
  5. DIGOXIN [Suspect]
     Indication: PRODUCT USED FOR UNKNOWN INDICATION
     Dosage: 250 MCG;QD;PO
     Route: 048
     Dates: start: 20060816, end: 20091027
  6. APAP TAB [Concomitant]
  7. PLAVIX [Concomitant]
  8. PREMARIN [Concomitant]
  9. EFFEXOR [Concomitant]
  10. ENALAPRIL MALEATE [Concomitant]
  11. AMOXICILLIN [Concomitant]
  12. SERTRALINE HYDROCHLORIDE [Concomitant]
  13. BUTABARBITAL [Concomitant]
  14. DEPO-MEDROL [Concomitant]
  15. SOTALOL HCL [Concomitant]
  16. SYNTHROID [Concomitant]
  17. CRESTOR [Concomitant]
  18. TERBINAFINE HCL [Concomitant]
  19. ZOLOFT [Concomitant]
  20. LIPITOR [Concomitant]
  21. LEVOTHYROXINE SODIUM [Concomitant]

REACTIONS (57)
  - EXTRASYSTOLES [None]
  - DIZZINESS [None]
  - JAW DISORDER [None]
  - BLOOD PRESSURE SYSTOLIC INCREASED [None]
  - EJECTION FRACTION DECREASED [None]
  - HYPOAESTHESIA [None]
  - HYPERHIDROSIS [None]
  - MASTICATION DISORDER [None]
  - HEART RATE IRREGULAR [None]
  - DEAFNESS [None]
  - HYPERLIPIDAEMIA [None]
  - CEREBROVASCULAR ACCIDENT [None]
  - PALPITATIONS [None]
  - CARDIAC VALVE DISEASE [None]
  - HEART RATE INCREASED [None]
  - COUGH [None]
  - WEIGHT DECREASED [None]
  - DILATATION VENTRICULAR [None]
  - CAROTID ARTERY STENOSIS [None]
  - TYPE V HYPERLIPIDAEMIA [None]
  - VENTRICULAR EXTRASYSTOLES [None]
  - AORTIC VALVE INCOMPETENCE [None]
  - RIGHT VENTRICULAR SYSTOLIC PRESSURE INCREASED [None]
  - ATRIOVENTRICULAR BLOCK FIRST DEGREE [None]
  - ELECTROCARDIOGRAM QRS COMPLEX ABNORMAL [None]
  - ATRIAL FIBRILLATION [None]
  - CONTUSION [None]
  - MYOCARDIAL ISCHAEMIA [None]
  - OROPHARYNGEAL PAIN [None]
  - ANGINA PECTORIS [None]
  - DYSPNOEA [None]
  - FATIGUE [None]
  - MITRAL VALVE PROLAPSE [None]
  - DILATATION ATRIAL [None]
  - SKIN MACERATION [None]
  - MIGRAINE [None]
  - ELECTROCARDIOGRAM ST SEGMENT DEPRESSION [None]
  - ARTHRITIS [None]
  - ELECTROCARDIOGRAM POOR R-WAVE PROGRESSION [None]
  - MYOCARDIAL INFARCTION [None]
  - TRICUSPID VALVE INCOMPETENCE [None]
  - THYROID DISORDER [None]
  - HYPOLIPIDAEMIA [None]
  - DEPRESSION [None]
  - BRAIN OPERATION [None]
  - TRANSIENT ISCHAEMIC ATTACK [None]
  - ABSCESS [None]
  - ELECTROCARDIOGRAM ST-T CHANGE [None]
  - CHEST PAIN [None]
  - DEFORMITY [None]
  - PALATAL DISORDER [None]
  - HEART RATE DECREASED [None]
  - MITRAL VALVE INCOMPETENCE [None]
  - OEDEMA PERIPHERAL [None]
  - VENTRICULAR TACHYCARDIA [None]
  - MITRAL VALVE CALCIFICATION [None]
  - SUPRAVENTRICULAR EXTRASYSTOLES [None]
